FAERS Safety Report 17930099 (Version 1)
Quarter: 2020Q2

REPORT INFORMATION
  Report Type: Spontaneous
  Country: US (occurrence: US)
  Receive Date: 20200623
  Receipt Date: 20200623
  Transmission Date: 20200714
  Serious: No
  Sender: FDA-Public Use
  Company Number: None

PATIENT
  Age: 64 Year
  Sex: Female
  Weight: 83.25 kg

DRUGS (6)
  1. VITAMIN D3 [Concomitant]
     Active Substance: CHOLECALCIFEROL
  2. PENNSAID [Concomitant]
     Active Substance: DICLOFENAC SODIUM
  3. DICYCLOMINE [Concomitant]
     Active Substance: DICYCLOMINE HYDROCHLORIDE
  4. PROBIOTICS [Concomitant]
     Active Substance: PROBIOTICS NOS
  5. VITAMIN B12 [Concomitant]
     Active Substance: CYANOCOBALAMIN
  6. ESTRADIOL 10 MCG VAGINAL TABS [Suspect]
     Active Substance: ESTRADIOL
     Indication: VULVOVAGINAL MYCOTIC INFECTION
     Dosage: ?          OTHER STRENGTH:MCG;QUANTITY:40 SUPPOSITORY(IES);?
     Route: 067
     Dates: start: 20200601

REACTIONS (5)
  - Depression [None]
  - Tremor [None]
  - Dementia [None]
  - Night sweats [None]
  - Abdominal pain [None]

NARRATIVE: CASE EVENT DATE: 20200603
